FAERS Safety Report 9845023 (Version 1)
Quarter: 2014Q1

REPORT INFORMATION
  Report Type: Spontaneous
  Country: BR (occurrence: None)
  Receive Date: 20140122
  Receipt Date: 20140122
  Transmission Date: 20141002
  Serious: Yes (Death)
  Sender: FDA-Public Use
  Company Number: SYM-2014-14821

PATIENT
  Age: 88 Year
  Sex: 0

DRUGS (3)
  1. FLUOROURACIL (FLUOROURACIL) (FLUOROURACIL) [Suspect]
     Indication: RECTAL ADENOCARCINOMA
  2. FOLINIC ACID (FOLINIC ACID) (FOLINIC ACID) [Suspect]
     Indication: RECTAL ADENOCARCINOMA
  3. THERAPEUTIC RADIOPHARMACEUTICALS (THERAPEUTIC RADIOPHARMACEUTICALS) [Suspect]
     Indication: RECTAL ADENOCARCINOMA

REACTIONS (2)
  - Cardiac arrest [None]
  - Arrhythmia supraventricular [None]
